FAERS Safety Report 10158381 (Version 1)
Quarter: 2014Q2

REPORT INFORMATION
  Report Type: Spontaneous
  Country: GB (occurrence: GB)
  Receive Date: 20140507
  Receipt Date: 20140507
  Transmission Date: 20141212
  Serious: Yes (Other)
  Sender: FDA-Public Use
  Company Number: PHHY2014GB053598

PATIENT
  Age: 82 Year
  Sex: Male
  Weight: 74.38 kg

DRUGS (10)
  1. PARACETAMOL [Suspect]
     Indication: BACK PAIN
     Dosage: 8 DF, QD
     Route: 048
     Dates: start: 201311
  2. WARFARIN [Suspect]
  3. FLECAINIDE [Concomitant]
  4. LOSARTAN [Concomitant]
  5. PANTOPRAZOLE [Concomitant]
  6. AMLODIPINE [Concomitant]
  7. FERROUS SULPHATE [Concomitant]
  8. DIGOXIN [Concomitant]
  9. CHOLECALCIFEROL [Concomitant]
  10. BENDROFLUMETHIAZIDE [Concomitant]

REACTIONS (2)
  - International normalised ratio increased [Unknown]
  - Drug interaction [Unknown]
